FAERS Safety Report 16559823 (Version 1)
Quarter: 2019Q3

REPORT INFORMATION
  Report Type: Report from Study
  Country: CA (occurrence: CA)
  Receive Date: 20190711
  Receipt Date: 20190711
  Transmission Date: 20191004
  Serious: Yes (Other)
  Sender: FDA-Public Use
  Company Number: CA-NALPROPION PHARMACEUTICALS INC.-2019-007826

PATIENT

DRUGS (2)
  1. CONTRAVE [Suspect]
     Active Substance: BUPROPION HYDROCHLORIDE\NALTREXONE HYDROCHLORIDE
     Indication: WEIGHT CONTROL
     Dosage: 2 DF, QD, STRENGTH 8 MG/90 MG
     Route: 048
     Dates: end: 20190625
  2. SAXENDA [Concomitant]
     Active Substance: LIRAGLUTIDE
     Indication: PRODUCT USED FOR UNKNOWN INDICATION
     Dosage: 1 DF, UNK
     Route: 065

REACTIONS (5)
  - Cardiac disorder [Not Recovered/Not Resolved]
  - Cardiac flutter [Recovering/Resolving]
  - Condition aggravated [Not Recovered/Not Resolved]
  - Chest discomfort [Recovering/Resolving]
  - Hypertension [Recovering/Resolving]
